FAERS Safety Report 5118948-1 (Version None)
Quarter: 2006Q3

REPORT INFORMATION
  Report Type: 
  Country: None (occurrence: None)
  Receive Date: 20060927
  Receipt Date: 20060627
  Transmission Date: 20061208
  Serious: Yes (Hospitalization)
  Sender: FDA-Public Use
  Company Number: 226293

PATIENT
  Age: 70 Year
  Sex: Male
  Weight: 73 kg

DRUGS (12)
  1. AVASTIN [Suspect]
     Indication: PANCREATIC CARCINOMA
  2. GEMCITABINE [Suspect]
     Indication: PANCREATIC CARCINOMA
  3. CAPECITABINE (CAPECITABINE) [Suspect]
     Indication: PANCREATIC CARCINOMA
  4. FENTANYL PATCH (FENTANYL CITRATE) [Concomitant]
  5. DILAUDID [Concomitant]
  6. COMPAZINE [Concomitant]
  7. CREON [Concomitant]
  8. CARDURA [Concomitant]
  9. ALTACE [Concomitant]
  10. ZOCOR [Concomitant]
  11. ATIVAN [Concomitant]
  12. LACTAID (LACTASE) [Concomitant]

REACTIONS (2)
  - CLOSTRIDIUM DIFFICILE COLITIS [None]
  - DEHYDRATION [None]
